FAERS Safety Report 24192136 (Version 1)
Quarter: 2024Q3

REPORT INFORMATION
  Report Type: Spontaneous
  Country: US (occurrence: US)
  Receive Date: 20240809
  Receipt Date: 20240809
  Transmission Date: 20241016
  Serious: Yes (Hospitalization, Other)
  Sender: GLAXOSMITHKLINE
  Company Number: US-GLAXOSMITHKLINE-US2024GSK097802

PATIENT

DRUGS (4)
  1. BUPROPION [Suspect]
     Active Substance: BUPROPION
     Indication: Product used for unknown indication
     Dosage: UNK
  2. GABAPENTIN [Suspect]
     Active Substance: GABAPENTIN
     Indication: Product used for unknown indication
     Dosage: UNK
  3. QUETIAPINE [Suspect]
     Active Substance: QUETIAPINE
     Indication: Product used for unknown indication
     Dosage: UNK
  4. ANASTROZOLE [Concomitant]
     Active Substance: ANASTROZOLE
     Indication: Breast cancer
     Dosage: UNK

REACTIONS (18)
  - Areflexia [Recovering/Resolving]
  - Coma [Recovering/Resolving]
  - Confusional state [Unknown]
  - Aphasia [Unknown]
  - Hypotension [Unknown]
  - Anaemia [Unknown]
  - Pupil fixed [Unknown]
  - Unresponsive to stimuli [Unknown]
  - Nervous system disorder [Unknown]
  - Hypothermia [Unknown]
  - Shock [Unknown]
  - Lactic acidosis [Unknown]
  - Myoclonus [Recovering/Resolving]
  - Epilepsy [Unknown]
  - Pulmonary embolism [Unknown]
  - Neurotoxicity [Unknown]
  - Toxicity to various agents [Unknown]
  - Intentional overdose [Unknown]
